FAERS Safety Report 8685557 (Version 2)
Quarter: 2012Q4

REPORT INFORMATION
  Report Type: 
  Country: US (occurrence: US)
  Receive Date: 20120726
  Receipt Date: 20120824
  Transmission Date: 20130627
  Serious: Yes (Hospitalization)
  Sender: FDA-Public Use
  Company Number: US-ELI_LILLY_AND_COMPANY-US201010005842

PATIENT
  Age: 74 None
  Sex: Female

DRUGS (6)
  1. FORTEO [Suspect]
     Indication: OSTEOPOROSIS
     Dosage: 20 ug, daily (1/D)
     Route: 065
     Dates: start: 20101006
  2. FORTEO [Suspect]
     Dosage: 20 ug, daily (1/D)
     Route: 065
  3. FORTEO [Suspect]
     Dosage: 20 ug, qd
     Route: 065
  4. FORTEO [Suspect]
     Dosage: 20 ug, qd
     Route: 065
  5. FORTEO [Suspect]
     Dosage: 20 ug, qd
  6. PREDNISONE [Concomitant]

REACTIONS (10)
  - Spinal column stenosis [Unknown]
  - Spondylolisthesis [Unknown]
  - Nerve injury [Unknown]
  - Back pain [Unknown]
  - Injection site haemorrhage [Unknown]
  - Injection site mass [Unknown]
  - Pain [Not Recovered/Not Resolved]
  - Injection site bruising [Unknown]
  - Injury associated with device [Unknown]
  - Medication error [Unknown]
